FAERS Safety Report 6028200-8 (Version None)
Quarter: 2009Q1

REPORT INFORMATION
  Report Type: 
  Country: None (occurrence: None)
  Receive Date: 20090106
  Receipt Date: 20081229
  Transmission Date: 20090719
  Serious: Yes (Other)
  Sender: FDA-Public Use
  Company Number: US-JNJFOC-20081207069

PATIENT
  Sex: Female
  Weight: 58.97 kg

DRUGS (3)
  1. DURAGESIC-100 [Suspect]
     Indication: NEURALGIA
     Route: 062
  2. FIORINAL [Concomitant]
     Indication: HEADACHE
     Dosage: DOSE : AS REQUIRED
     Route: 048
  3. SOMA [Concomitant]
     Indication: MUSCLE RELAXANT THERAPY
     Dosage: DOSAGE : AS NEEDED
     Route: 048

REACTIONS (5)
  - APPLICATION SITE REACTION [None]
  - GRAND MAL CONVULSION [None]
  - INCORRECT DRUG ADMINISTRATION DURATION [None]
  - JOINT DISLOCATION [None]
  - WRONG TECHNIQUE IN DRUG USAGE PROCESS [None]
